FAERS Safety Report 11388301 (Version 5)
Quarter: 2015Q4

REPORT INFORMATION
  Report Type: Spontaneous
  Country: JP (occurrence: JP)
  Receive Date: 20150817
  Receipt Date: 20151007
  Transmission Date: 20160304
  Serious: Yes (Death, Hospitalization)
  Sender: FDA-Public Use
  Company Number: JP-JNJFOC-20150702436

PATIENT
  Age: 78 Year
  Sex: Male
  Weight: 65 kg

DRUGS (3)
  1. PREDONINE [Suspect]
     Active Substance: PREDNISOLONE\PREDNISOLONE ACETATE\PREDNISOLONE SODIUM SUCCINATE
     Indication: PROSTATE CANCER
     Route: 048
     Dates: start: 20140917, end: 20141020
  2. ZYTIGA [Suspect]
     Active Substance: ABIRATERONE ACETATE
     Indication: PROSTATE CANCER
     Route: 048
     Dates: start: 20140917, end: 20141020
  3. LASIX [Suspect]
     Active Substance: FUROSEMIDE
     Indication: OEDEMA
     Route: 048
     Dates: start: 20140920, end: 20141027

REACTIONS (4)
  - Oedema peripheral [Not Recovered/Not Resolved]
  - Respiratory failure [Fatal]
  - Hypokalaemia [Not Recovered/Not Resolved]
  - Prostate cancer [Fatal]

NARRATIVE: CASE EVENT DATE: 20141001
